FAERS Safety Report 17516938 (Version 1)
Quarter: 2020Q1

REPORT INFORMATION
  Report Type: Spontaneous
  Country: US (occurrence: US)
  Receive Date: 20200307
  Receipt Date: 20200307
  Transmission Date: 20200409
  Serious: Yes (Hospitalization, Disabling)
  Sender: FDA-Public Use
  Company Number: None

PATIENT
  Age: 25 Year
  Weight: 112.5 kg

DRUGS (9)
  1. QVAR [Concomitant]
     Active Substance: BECLOMETHASONE DIPROPIONATE
  2. FENOFIBRATE. [Concomitant]
     Active Substance: FENOFIBRATE
  3. MONTELUKAST 10 MG TABLET [Suspect]
     Active Substance: MONTELUKAST SODIUM
     Indication: ASTHMA
     Route: 048
  4. ARIPRAZOLE [Concomitant]
     Active Substance: ARIPIPRAZOLE
  5. SINGULAIR [Suspect]
     Active Substance: MONTELUKAST SODIUM
  6. ALBUTEROL NEBULIZER [Concomitant]
     Active Substance: ALBUTEROL
  7. BUPROPRION [Concomitant]
     Active Substance: BUPROPION
  8. FLUOXETINE [Concomitant]
     Active Substance: FLUOXETINE HYDROCHLORIDE
  9. LISINOPRIL. [Concomitant]
     Active Substance: LISINOPRIL

REACTIONS (4)
  - Depressed level of consciousness [None]
  - Obsessive-compulsive disorder [None]
  - Depression [None]
  - Insomnia [None]

NARRATIVE: CASE EVENT DATE: 20120101
